FAERS Safety Report 8325577-5 (Version None)
Quarter: 2012Q2

REPORT INFORMATION
  Report Type: 
  Country: None (occurrence: None)
  Receive Date: 20120501
  Receipt Date: 20120418
  Transmission Date: 20120825
  Serious: Yes (Other)
  Sender: FDA-Public Use
  Company Number: CN-JNJFOC-20111100092

PATIENT
  Sex: Female

DRUGS (2)
  1. REMICADE [Suspect]
     Indication: RHEUMATOID ARTHRITIS
     Dosage: W0,2,2,4,EVERY4;  ONCE IN 28(UNITS UNSPECIFIED)
     Route: 042
     Dates: start: 20100302
  2. REMICADE [Suspect]
     Dosage: ONCE IN 28(UNSPECIFIED)
     Route: 042
     Dates: end: 20110802

REACTIONS (1)
  - TUBERCULOSIS [None]
